FAERS Safety Report 6673243-4 (Version None)
Quarter: 2010Q2

REPORT INFORMATION
  Report Type: 
  Country: None (occurrence: None)
  Receive Date: 20100408
  Receipt Date: 20100329
  Transmission Date: 20101027
  Serious: Yes (Other)
  Sender: FDA-Public Use
  Company Number: CZ-PFIZER INC-2010040177

PATIENT
  Sex: Female

DRUGS (1)
  1. SAYANA [Suspect]
     Indication: ENDOMETRIOSIS
     Dosage: UNK
     Dates: start: 20090901

REACTIONS (7)
  - ABDOMINAL PAIN [None]
  - ACNE [None]
  - BREAST SWELLING [None]
  - INAPPROPRIATE SCHEDULE OF DRUG ADMINISTRATION [None]
  - INJECTION SITE NECROSIS [None]
  - MENSTRUAL DISORDER [None]
  - WRONG TECHNIQUE IN DRUG USAGE PROCESS [None]
